FAERS Safety Report 20977949 (Version 1)
Quarter: 2022Q2

REPORT INFORMATION
  Report Type: Spontaneous
  Country: US (occurrence: US)
  Receive Date: 20220618
  Receipt Date: 20220618
  Transmission Date: 20220721
  Serious: Yes (Other)
  Sender: FDA-Public Use
  Company Number: US-TEVA-2022-US-2045972

PATIENT
  Age: 78 Year
  Sex: Female
  Weight: 68.04 kg

DRUGS (18)
  1. ALBUTEROL SULFATE [Suspect]
     Active Substance: ALBUTEROL SULFATE
     Indication: Dyspnoea
     Dosage: INHALED 2 PUFFS EVERY 6 HOURS
     Dates: start: 202205
  2. ALBUTEROL SULFATE [Suspect]
     Active Substance: ALBUTEROL SULFATE
     Indication: Wheezing
  3. ASPIRIN [Concomitant]
     Active Substance: ASPIRIN
  4. ATORVASTATIN [Concomitant]
     Active Substance: ATORVASTATIN
  5. CALCIUM [Concomitant]
     Active Substance: CALCIUM
  6. VITAMIN D3 [Concomitant]
     Active Substance: CHOLECALCIFEROL
  7. CLINDAMYCIN [Concomitant]
     Active Substance: CLINDAMYCIN
     Dosage: SOLUTION
     Route: 061
  8. DILTIAZEM [Concomitant]
     Active Substance: DILTIAZEM
     Indication: Cardiac disorder
  9. ESOMEPRAZOLE [Concomitant]
     Active Substance: ESOMEPRAZOLE
  10. FENOFIBRATE [Concomitant]
     Active Substance: FENOFIBRATE
  11. GABAPENTIN [Concomitant]
     Active Substance: GABAPENTIN
  12. HYOSCYAMINE [Concomitant]
     Active Substance: HYOSCYAMINE
  13. LIDOCAINE [Concomitant]
     Active Substance: LIDOCAINE
  14. LOPERAMIDE [Concomitant]
     Active Substance: LOPERAMIDE
  15. LOSARTAN [Concomitant]
     Active Substance: LOSARTAN
  16. INSULIN NOS [Concomitant]
     Active Substance: INSULIN NOS
  17. NYSTATIN [Concomitant]
     Active Substance: NYSTATIN
  18. METOPROLOL [Concomitant]
     Active Substance: METOPROLOL
     Indication: Cardiac disorder

REACTIONS (6)
  - Choking [Unknown]
  - Blood brain barrier defect [Unknown]
  - Headache [Recovered/Resolved]
  - Product taste abnormal [Unknown]
  - Product odour abnormal [Unknown]
  - Sputum discoloured [Not Recovered/Not Resolved]

NARRATIVE: CASE EVENT DATE: 20220101
